FAERS Safety Report 23158583 (Version 1)
Quarter: 2023Q4

REPORT INFORMATION
  Report Type: Spontaneous
  Country: US (occurrence: US)
  Receive Date: 20231108
  Receipt Date: 20231108
  Transmission Date: 20240110
  Serious: Yes (Other)
  Sender: FDA-Public Use
  Company Number: US-MYLANLABS-2023M1116974

PATIENT
  Age: 20 Year
  Sex: Female

DRUGS (5)
  1. LAMOTRIGINE [Interacting]
     Active Substance: LAMOTRIGINE
     Indication: Bipolar II disorder
     Dosage: 200 MILLIGRAM, QD
     Route: 065
  2. LAMOTRIGINE [Interacting]
     Active Substance: LAMOTRIGINE
     Indication: Depression
     Dosage: 300 MILLIGRAM, QD
     Route: 065
  3. ETHINYL ESTRADIOL\NORGESTIMATE [Interacting]
     Active Substance: ETHINYL ESTRADIOL\NORGESTIMATE
     Indication: Endometriosis
     Dosage: UNK
     Route: 048
  4. BUPROPION [Concomitant]
     Active Substance: BUPROPION
     Indication: Bipolar II disorder
     Dosage: 450 MILLIGRAM, QD, FORMULATION: EXTENDED-RELEASE
     Route: 065
  5. BUPROPION [Concomitant]
     Active Substance: BUPROPION
     Indication: Depression

REACTIONS (4)
  - Drug interaction [Unknown]
  - Depressive symptom [Unknown]
  - Symptom recurrence [Unknown]
  - Off label use [Unknown]
